FAERS Safety Report 4755010-1 (Version None)
Quarter: 2005Q3

REPORT INFORMATION
  Report Type: 
  Country: None (occurrence: None)
  Receive Date: 20050829
  Receipt Date: 20050815
  Transmission Date: 20060218
  Serious: Yes (Other)
  Sender: FDA-Public Use
  Company Number: US-JNJFOC-20050600264

PATIENT
  Sex: Female
  Weight: 107.05 kg

DRUGS (20)
  1. MOTRIN [Suspect]
     Dosage: DECREASED DOSE
     Route: 048
  2. MOTRIN [Suspect]
     Indication: BACK PAIN
     Route: 048
  3. MOTRIN [Suspect]
  4. MOTRIN [Suspect]
     Indication: BACK PAIN
  5. PRILOSEC [Concomitant]
     Route: 048
  6. TRAZODONE [Concomitant]
     Route: 048
  7. ALTACE [Concomitant]
  8. NORVASC [Concomitant]
  9. ZOCOR [Concomitant]
  10. ZETIA [Concomitant]
  11. CELEXA [Concomitant]
  12. STRATTERA [Concomitant]
  13. PRILOSEC [Concomitant]
  14. NEXIUM [Concomitant]
  15. AMBIEN [Concomitant]
  16. TOPROL-XL [Concomitant]
  17. ZEBETA [Concomitant]
  18. VICODIN [Concomitant]
  19. VICODIN [Concomitant]
  20. ZANAFLEX [Concomitant]

REACTIONS (5)
  - ABDOMINAL PAIN UPPER [None]
  - DRUG INEFFECTIVE [None]
  - GASTRIC ULCER [None]
  - GASTRITIS [None]
  - OESOPHAGITIS [None]
